FAERS Safety Report 20880482 (Version 1)
Quarter: 2022Q2

REPORT INFORMATION
  Report Type: Spontaneous
  Country: AU (occurrence: AU)
  Receive Date: 20220526
  Receipt Date: 20220526
  Transmission Date: 20220721
  Serious: Yes (Hospitalization, Other)
  Sender: FDA-Public Use
  Company Number: AU-BoehringerIngelheim-2022-BI-172887

PATIENT
  Age: 3 Year
  Sex: Male

DRUGS (1)
  1. CLONIDINE [Suspect]
     Active Substance: CLONIDINE
     Indication: Product used for unknown indication
     Dosage: USUAL DOSE 0.5T X 100MCG AT NIGHT. PARENT COULD NOT TELL HOW MANY ARE MISSING

REACTIONS (3)
  - Loss of consciousness [Unknown]
  - Accidental overdose [Unknown]
  - Product use issue [Unknown]
